FAERS Safety Report 21063611 (Version 1)
Quarter: 2022Q3

REPORT INFORMATION
  Report Type: Spontaneous
  Country: US (occurrence: None)
  Receive Date: 20220708
  Receipt Date: 20220708
  Transmission Date: 20221027
  Serious: No
  Sender: FDA-Public Use
  Company Number: None

PATIENT
  Sex: Female

DRUGS (1)
  1. OTEZLA [Suspect]
     Active Substance: APREMILAST
     Indication: Dermatitis atopic
     Dosage: 30MG TWICE DAILY ORAL?
     Route: 048
     Dates: start: 202206

REACTIONS (4)
  - Oropharyngeal pain [None]
  - Nasopharyngitis [None]
  - Dry throat [None]
  - Therapy cessation [None]
